FAERS Safety Report 9895059 (Version 2)
Quarter: 2014Q1

REPORT INFORMATION
  Report Type: Spontaneous
  Country: US (occurrence: US)
  Receive Date: 20140213
  Receipt Date: 20140213
  Transmission Date: 20141002
  Serious: No
  Sender: FDA-Public Use
  Company Number: US-BRISTOL-MYERS SQUIBB COMPANY-17472978

PATIENT
  Age: 58 Year
  Sex: Female

DRUGS (1)
  1. ORENCIA FOR INJ 250 MG/VIAL [Suspect]
     Indication: RHEUMATOID ARTHRITIS
     Dosage: LAST DOSE: 04MAR2013
     Route: 042
     Dates: end: 2012

REACTIONS (3)
  - Respiratory tract infection [Unknown]
  - Therapeutic response delayed [Recovered/Resolved]
  - Drug ineffective [Unknown]
